FAERS Safety Report 5215368-6 (Version None)
Quarter: 2007Q1

REPORT INFORMATION
  Report Type: 
  Country: None (occurrence: None)
  Receive Date: 20070116
  Receipt Date: 20070110
  Transmission Date: 20070707
  Serious: Yes (Death)
  Sender: FDA-Public Use
  Company Number: 2006SP008895

PATIENT
  Age: 83 Year
  Sex: Male

DRUGS (2)
  1. TEMODAL [Suspect]
     Indication: GLIOBLASTOMA MULTIFORME
     Dosage: 150 MG/M2; QD; PO
     Route: 048
     Dates: start: 20060920, end: 20060924
  2. STEROID [Concomitant]

REACTIONS (9)
  - ANOREXIA [None]
  - DECREASED ACTIVITY [None]
  - FUNGAL INFECTION [None]
  - INTERSTITIAL LUNG DISEASE [None]
  - LYMPHOCYTE COUNT DECREASED [None]
  - OPPORTUNISTIC INFECTION [None]
  - ORAL INTAKE REDUCED [None]
  - PNEUMONIA [None]
  - RESPIRATORY FAILURE [None]
